FAERS Safety Report 16737417 (Version 1)
Quarter: 2019Q3

REPORT INFORMATION
  Report Type: Spontaneous
  Country: US (occurrence: US)
  Receive Date: 20190823
  Receipt Date: 20190823
  Transmission Date: 20191005
  Serious: No
  Sender: FDA-Public Use
  Company Number: US-HORIZON-PEN-0775-2019

PATIENT
  Age: 59 Year
  Sex: Female

DRUGS (3)
  1. PENNSAID [Suspect]
     Active Substance: DICLOFENAC SODIUM
     Indication: ARTHRITIS
     Dosage: 2 PUMPS BID
     Dates: start: 20190727
  2. LISINOPRIL/HCTZ [Concomitant]
     Active Substance: HYDROCHLOROTHIAZIDE\LISINOPRIL
  3. METOPROLOL. [Concomitant]
     Active Substance: METOPROLOL

REACTIONS (2)
  - Application site rash [Recovering/Resolving]
  - Application site pruritus [Recovering/Resolving]

NARRATIVE: CASE EVENT DATE: 20190727
